FAERS Safety Report 8027495-9 (Version None)
Quarter: 2012Q1

REPORT INFORMATION
  Report Type: 
  Country: None (occurrence: None)
  Receive Date: 20120106
  Receipt Date: 20120103
  Transmission Date: 20120608
  Serious: Yes (Hospitalization)
  Sender: FDA-Public Use
  Company Number: US-JNJFOC-20120100606

PATIENT
  Sex: Female
  Weight: 61.24 kg

DRUGS (4)
  1. LYRICA [Concomitant]
     Indication: FIBROMYALGIA
     Route: 065
  2. REMICADE [Suspect]
     Indication: CROHN'S DISEASE
     Route: 042
  3. CYMBALTA [Concomitant]
     Indication: FIBROMYALGIA
     Route: 065
  4. REMICADE [Suspect]
     Indication: ARTHRITIS
     Route: 042

REACTIONS (7)
  - BACK PAIN [None]
  - CYSTITIS [None]
  - WEIGHT INCREASED [None]
  - WITHDRAWAL SYNDROME [None]
  - PARAESTHESIA [None]
  - SEPSIS [None]
  - PAIN IN EXTREMITY [None]
